FAERS Safety Report 8417003-2 (Version None)
Quarter: 2012Q2

REPORT INFORMATION
  Report Type: 
  Country: None (occurrence: None)
  Receive Date: 20120606
  Receipt Date: 20120524
  Transmission Date: 20120825
  Serious: Yes (Hospitalization)
  Sender: FDA-Public Use
  Company Number: PHHY2012FR047958

PATIENT
  Sex: Female
  Weight: 77 kg

DRUGS (3)
  1. NEORAL [Suspect]
     Dosage: 125 MG, UNK
     Route: 048
     Dates: start: 20080823
  2. NEORAL [Suspect]
     Dosage: 100 MG, UNK
     Route: 048
  3. MYCOPHENOLIC ACID [Suspect]
     Indication: RENAL TRANSPLANT
     Dosage: 180 MG, UNK
     Route: 048
     Dates: start: 20080822

REACTIONS (3)
  - ESCHERICHIA INFECTION [None]
  - PYELONEPHRITIS ACUTE [None]
  - SCAR [None]
